FAERS Safety Report 5523073-1 (Version None)
Quarter: 2007Q4

REPORT INFORMATION
  Report Type: 
  Country: None (occurrence: None)
  Receive Date: 20071121
  Receipt Date: 20071113
  Transmission Date: 20080405
  Serious: Yes (Other)
  Sender: FDA-Public Use
  Company Number: PHBS2007GR19041

PATIENT
  Sex: Male

DRUGS (2)
  1. CERTICAN [Suspect]
     Route: 048
  2. MYFORTIC [Suspect]
     Route: 048

REACTIONS (3)
  - GASTROINTESTINAL PAIN [None]
  - INTESTINAL FUNCTIONAL DISORDER [None]
  - LAPAROTOMY [None]
